FAERS Safety Report 24554523 (Version 1)
Quarter: 2024Q4

REPORT INFORMATION
  Report Type: Spontaneous
  Country: IN (occurrence: IN)
  Receive Date: 20241028
  Receipt Date: 20241028
  Transmission Date: 20250115
  Serious: Yes (Hospitalization)
  Sender: STRIDES
  Company Number: None

PATIENT
  Age: 5 Year
  Sex: Female

DRUGS (4)
  1. PREDNISOLONE [Suspect]
     Active Substance: PREDNISOLONE
     Indication: Product used for unknown indication
     Dosage: 5 MILLIGRAM, QD (ONCE AT NIGHT)
     Route: 065
  2. DEXAMETHASONE [Suspect]
     Active Substance: DEXAMETHASONE
     Indication: COVID-19
     Dosage: 0.6 MILLILITER, EVERY 8 HOURS
     Route: 065
  3. METHYLPREDNISOLONE [Suspect]
     Active Substance: METHYLPREDNISOLONE
     Indication: COVID-19
     Dosage: 250 MILLIGRAM, QD
     Route: 065
  4. OXYGEN [Concomitant]
     Active Substance: OXYGEN
     Indication: COVID-19
     Dosage: UNK
     Route: 065

REACTIONS (13)
  - Multisystem inflammatory syndrome in children [Unknown]
  - Aggression [Unknown]
  - Self-destructive behaviour [Unknown]
  - Tricuspid valve incompetence [Recovered/Resolved]
  - Tooth loss [Unknown]
  - Thrombocytopenia [Recovered/Resolved]
  - Anaemia [Recovered/Resolved]
  - Myocarditis [Recovered/Resolved]
  - Extra dose administered [Recovered/Resolved]
  - Osteonecrosis [Recovered/Resolved]
  - Hallucination, visual [Unknown]
  - Psychotic disorder [Unknown]
  - Osteomyelitis [Recovered/Resolved]
